FAERS Safety Report 16153962 (Version 1)
Quarter: 2019Q2

REPORT INFORMATION
  Report Type: Spontaneous
  Country: US (occurrence: US)
  Receive Date: 20190403
  Receipt Date: 20190403
  Transmission Date: 20190711
  Serious: No
  Sender: FDA-Public Use
  Company Number: US-PFIZER INC-2018482584

PATIENT
  Age: 52 Year
  Sex: Female
  Weight: 135.42 kg

DRUGS (22)
  1. AMOXICILLIN. [Concomitant]
     Active Substance: AMOXICILLIN
     Indication: DENTAL CLEANING
     Dosage: 500 MG, EVERY 6 MONTHS
  2. PREMARIN [Concomitant]
     Active Substance: ESTROGENS, CONJUGATED
     Dosage: 0.625 MG, DAILY
  3. MONTELUKAST [Concomitant]
     Active Substance: MONTELUKAST SODIUM
     Dosage: 10 MG, UNK
  4. LEVOTHYROXINE. [Concomitant]
     Active Substance: LEVOTHYROXINE
     Dosage: 175 MG, DAILY
  5. SIMVASTATIN. [Concomitant]
     Active Substance: SIMVASTATIN
     Dosage: 20 MG, DAILY
  6. CALCIUM + D3 [CALCIUM;COLECALCIFEROL] [Concomitant]
     Dosage: 1 DF, 2X/DAY
  7. OMEPRAZOLE. [Concomitant]
     Active Substance: OMEPRAZOLE
     Dosage: UNK
  8. VOLTAREN [Concomitant]
     Active Substance: DICLOFENAC SODIUM
     Dosage: 100 G, UNK
  9. CELEXA [CELECOXIB] [Concomitant]
     Active Substance: CELECOXIB
     Dosage: 40 MG, DAILY
  10. TAXOTERE [Suspect]
     Active Substance: DOCETAXEL
     Indication: BREAST CANCER
     Dosage: 180 MG, CYCLIC (EVERY THREE WEEKS; 04 CYCLES)
     Dates: start: 20140331, end: 20140605
  11. NEOSAR [Concomitant]
     Active Substance: CYCLOPHOSPHAMIDE
     Dosage: UNK
  12. PLAQUENIL [HYDROXYCHLOROQUINE PHOSPHATE] [Concomitant]
     Active Substance: HYDROXYCHLOROQUINE DIPHOSPHATE
     Dosage: 200 MG, 2X/DAY
  13. TYLENOL ARTHRITIS PAIN [Concomitant]
     Active Substance: ACETAMINOPHEN
     Dosage: 650 MG, AS NEEDED (OVER THE COUNTER)
  14. DOCETAXEL. [Suspect]
     Active Substance: DOCETAXEL
     Indication: BREAST CANCER
     Dosage: 180 MG, CYCLIC (EVERY THREE WEEKS; 04 CYCLES)
     Dates: start: 20140331, end: 20140605
  15. BUPROPION. [Concomitant]
     Active Substance: BUPROPION
     Dosage: 150 MG, DAILY
  16. MULTIVITAMINS W/MINERALS [Concomitant]
     Active Substance: MINERALS\VITAMINS
     Dosage: OVER THE COUNTER
  17. SULINDAC. [Concomitant]
     Active Substance: SULINDAC
     Dosage: 200 MG, 2X/DAY
  18. OXYBUTYNIN. [Concomitant]
     Active Substance: OXYBUTYNIN CHLORIDE
     Dosage: 10 MG, UNK
  19. METFORMIN [Concomitant]
     Active Substance: METFORMIN HYDROCHLORIDE
     Dosage: 500 MG, UNK
  20. ASPIRIN 81 [Concomitant]
     Active Substance: ASPIRIN
     Dosage: 81 MG, DAILY (OVER THE COUNTER)
  21. XYZAL [Concomitant]
     Active Substance: LEVOCETIRIZINE DIHYDROCHLORIDE
     Dosage: 5 MG, UNK
  22. NALTREXONE [Concomitant]
     Active Substance: NALTREXONE
     Dosage: 20 MG, UNK

REACTIONS (3)
  - Madarosis [Not Recovered/Not Resolved]
  - Hair texture abnormal [Not Recovered/Not Resolved]
  - Alopecia [Unknown]
